FAERS Safety Report 4568365-8 (Version None)
Quarter: 2005Q1

REPORT INFORMATION
  Report Type: 
  Country: None (occurrence: None)
  Receive Date: 20050131
  Receipt Date: 20050117
  Transmission Date: 20050727
  Serious: Yes (Death, Other)
  Sender: FDA-Public Use
  Company Number: 2004-00807

PATIENT
  Age: 71 Year
  Sex: Male
  Weight: 68 kg

DRUGS (2)
  1. VELCADE [Suspect]
     Indication: MULTIPLE MYELOMA
     Dosage: 2.21 MG, INTRAVENOUS
     Route: 042
     Dates: start: 20041105, end: 20041108
  2. DEXAMETHASONE [Suspect]
     Indication: MULTIPLE MYELOMA
     Dosage: 8.00 MG
     Dates: start: 20041105

REACTIONS (1)
  - INJECTION SITE REACTION [None]
